FAERS Safety Report 10039368 (Version 1)
Quarter: 2014Q1

REPORT INFORMATION
  Report Type: Report from Study
  Country: DE (occurrence: DE)
  Receive Date: 20140326
  Receipt Date: 20140326
  Transmission Date: 20141002
  Serious: Yes (Hospitalization)
  Sender: FDA-Public Use
  Company Number: PHHY2014DE035376

PATIENT
  Sex: Male

DRUGS (1)
  1. SOM230 [Suspect]
     Dosage: 40 MG, QMO
     Dates: start: 20110714

REACTIONS (1)
  - Infection [Unknown]
